FAERS Safety Report 4401149-X (Version None)
Quarter: 2004Q3

REPORT INFORMATION
  Report Type: 
  Country: None (occurrence: None)
  Receive Date: 20040907
  Receipt Date: 20031119
  Transmission Date: 20050211
  Serious: No
  Sender: FDA-Public Use
  Company Number: US-BRISTOL-MYERS SQUIBB COMPANY-12439279

PATIENT
  Age: 66 Year
  Sex: Male
  Weight: 106 kg

DRUGS (12)
  1. COUMADIN [Suspect]
     Indication: ATRIAL FIBRILLATION
     Dosage: 10 MG ON MONDAY, WEDNESDAY, FRIDAY AND 7.5 MG ON TUESDAY, THURSDAY, SATURDAY, AND SUNDAY.
     Route: 048
     Dates: start: 20030827
  2. AVANDIA [Concomitant]
  3. GLUCOPHAGE [Concomitant]
  4. ZESTRIL [Concomitant]
  5. LIPITOR [Concomitant]
  6. DIGOXIN [Concomitant]
  7. DILTIAZEM HCL [Concomitant]
  8. TRAZODONE HCL [Concomitant]
  9. LASIX [Concomitant]
  10. POTASSIUM [Concomitant]
  11. PRILOSEC [Concomitant]
  12. DARVOCET [Concomitant]
     Indication: PAIN
     Dosage: AS NEEDED

REACTIONS (2)
  - NAUSEA [None]
  - VOMITING [None]
